FAERS Safety Report 5386435-1 (Version None)
Quarter: 2007Q3

REPORT INFORMATION
  Report Type: 
  Country: None (occurrence: None)
  Receive Date: 20070710
  Receipt Date: 20070628
  Transmission Date: 20080115
  Serious: Yes (Hospitalization)
  Sender: FDA-Public Use
  Company Number: WAES 0707USA00396

PATIENT
  Age: 60 Year
  Sex: Male

DRUGS (1)
  1. COZAAR [Suspect]
     Indication: ESSENTIAL HYPERTENSION
     Dosage: 50 MG/DAILY PO
     Route: 048
     Dates: start: 20070213, end: 20070409

REACTIONS (1)
  - RECTAL CANCER [None]
